FAERS Safety Report 15741465 (Version 2)
Quarter: 2019Q1

REPORT INFORMATION
  Report Type: Report from Study
  Country: FR (occurrence: FR)
  Receive Date: 20181219
  Receipt Date: 20190125
  Transmission Date: 20190417
  Serious: Yes (Other)
  Sender: FDA-Public Use
  Company Number: FR-JAZZ-2018-FR-014890

PATIENT

DRUGS (8)
  1. DEFITELIO [Suspect]
     Active Substance: DEFIBROTIDE SODIUM
     Indication: PROPHYLAXIS
     Dosage: 13 MG/KG, QD
     Route: 042
     Dates: start: 20170720, end: 2017
  2. CICLOSPORIN [Suspect]
     Active Substance: CYCLOSPORINE
     Indication: PROPHYLAXIS
     Dosage: 25 G, QD
     Route: 048
     Dates: start: 20170816, end: 20170829
  3. AMOXICILLINE SODIUM [Concomitant]
     Active Substance: AMOXICILLIN SODIUM
     Indication: INFECTION PROPHYLAXIS
     Dosage: 2 G, QD
     Route: 048
     Dates: start: 20170822, end: 20170829
  4. DEFITELIO [Suspect]
     Active Substance: DEFIBROTIDE SODIUM
     Dosage: 26 MG/KG, QD
     Route: 042
     Dates: start: 2017, end: 20170820
  5. LERCANIDIPINE [Concomitant]
     Active Substance: LERCANIDIPINE
     Indication: HYPERTENSION
     Dosage: 10 MG, QD
     Route: 048
     Dates: start: 20170813, end: 20170829
  6. PANTOPRAZOLE [Concomitant]
     Active Substance: PANTOPRAZOLE
     Indication: GASTROOESOPHAGEAL REFLUX PROPHYLAXIS
     Dosage: 40 MG, QD
     Route: 042
     Dates: start: 20170724, end: 20170828
  7. ZELITREX [Concomitant]
     Active Substance: VALACYCLOVIR HYDROCHLORIDE
     Indication: PROPHYLAXIS
     Dosage: 500 MG, QD
     Route: 048
     Dates: start: 20170817
  8. CHOLURSO [Concomitant]
     Active Substance: URSODIOL
     Indication: PROPHYLAXIS
     Dosage: 2 G, QD
     Route: 048
     Dates: start: 20170822, end: 20180614

REACTIONS (2)
  - Venoocclusive disease [Recovered/Resolved]
  - Thrombotic microangiopathy [Recovered/Resolved]

NARRATIVE: CASE EVENT DATE: 20170822
